FAERS Safety Report 13349331 (Version 1)
Quarter: 2017Q1

REPORT INFORMATION
  Report Type: Spontaneous
  Country: US (occurrence: US)
  Receive Date: 20170320
  Receipt Date: 20170320
  Transmission Date: 20170428
  Serious: No
  Sender: FDA-Public Use
  Company Number: US-DEPOMED, INC.-US-2016DEP011463

PATIENT

DRUGS (2)
  1. GRALISE [Suspect]
     Active Substance: GABAPENTIN
     Indication: BACK PAIN
     Dosage: 300 MG, QD
     Route: 048
     Dates: start: 20160710
  2. GRALISE [Suspect]
     Active Substance: GABAPENTIN
     Indication: LUMBAR SPINAL STENOSIS
     Dosage: 300 MG, QD, TITRATED UP TO 900 MG, QD
     Route: 048
     Dates: start: 20160706, end: 20160709

REACTIONS (2)
  - Product use issue [Not Recovered/Not Resolved]
  - Dizziness [Recovered/Resolved]

NARRATIVE: CASE EVENT DATE: 20160706
